FAERS Safety Report 22701291 (Version 2)
Quarter: 2024Q2

REPORT INFORMATION
  Report Type: Spontaneous
  Country: US (occurrence: US)
  Receive Date: 20230713
  Receipt Date: 20240502
  Transmission Date: 20240716
  Serious: Yes (Hospitalization, Other)
  Sender: FDA-Public Use
  Company Number: US-ABBVIE-5325393

PATIENT
  Sex: Male

DRUGS (2)
  1. LUPRON [Suspect]
     Active Substance: LEUPROLIDE ACETATE
     Indication: Prostatic specific antigen increased
     Route: 065
     Dates: start: 200909
  2. ENZALUTAMIDE [Suspect]
     Active Substance: ENZALUTAMIDE
     Indication: Prostatic specific antigen increased
     Route: 048
     Dates: start: 201811

REACTIONS (4)
  - Intestinal obstruction [Unknown]
  - Cognitive disorder [Not Recovered/Not Resolved]
  - Hot flush [Unknown]
  - Gastrointestinal disorder [Unknown]
